FAERS Safety Report 6294224-9 (Version None)
Quarter: 2009Q3

REPORT INFORMATION
  Report Type: 
  Country: None (occurrence: None)
  Receive Date: 20090803
  Receipt Date: 20090317
  Transmission Date: 20100115
  Serious: No
  Sender: FDA-Public Use
  Company Number: A0773747A

PATIENT
  Age: 23 Year
  Sex: Male

DRUGS (1)
  1. NICORETTE [Suspect]
     Dates: start: 20090317, end: 20090317

REACTIONS (2)
  - DYSGEUSIA [None]
  - THROAT IRRITATION [None]
